FAERS Safety Report 6862011-6 (Version None)
Quarter: 2010Q3

REPORT INFORMATION
  Report Type: 
  Country: None (occurrence: None)
  Receive Date: 20100719
  Receipt Date: 20100707
  Transmission Date: 20110219
  Serious: Yes (Death)
  Sender: FDA-Public Use
  Company Number: 010422

PATIENT
  Sex: Female

DRUGS (1)
  1. CIMZIA [Suspect]
     Indication: CROHN'S DISEASE
     Dosage: SUBCUTANEOUS
     Route: 058

REACTIONS (6)
  - ABDOMINAL PAIN [None]
  - ANAEMIA [None]
  - COLONIC FISTULA [None]
  - LARGE INTESTINE PERFORATION [None]
  - PERIRECTAL ABSCESS [None]
  - PULMONARY EMBOLISM [None]
